FAERS Safety Report 10996841 (Version 1)
Quarter: 2015Q2

REPORT INFORMATION
  Report Type: Spontaneous
  Country: US (occurrence: None)
  Receive Date: 20150402
  Receipt Date: 20150402
  Transmission Date: 20150821
  Serious: Yes (Hospitalization)
  Sender: FDA-Public Use
  Company Number: 201404075

PATIENT
  Age: 55 Year
  Sex: Female
  Weight: 50.8 kg

DRUGS (3)
  1. ADVAIR DISKUS [Concomitant]
     Active Substance: FLUTICASONE PROPIONATE\SALMETEROL XINAFOATE
  2. RHINOCORT [Concomitant]
     Active Substance: BUDESONIDE
  3. XIAFLEX [Suspect]
     Active Substance: COLLAGENASE CLOSTRIDIUM HISTOLYTICUM
     Indication: DUPUYTREN^S CONTRACTURE
     Dosage: 1 IN 1 D, INTRALESIONAL
     Dates: start: 20140324, end: 20140324

REACTIONS (2)
  - Peripheral swelling [None]
  - Injection site swelling [None]

NARRATIVE: CASE EVENT DATE: 20140325
